FAERS Safety Report 7336333-9 (Version None)
Quarter: 2011Q1

REPORT INFORMATION
  Report Type: 
  Country: None (occurrence: None)
  Receive Date: 20110224
  Receipt Date: 20110107
  Transmission Date: 20110831
  Serious: Yes (Hospitalization, Other)
  Sender: FDA-Public Use
  Company Number: WAES 1008USA00507

PATIENT
  Age: 4 Year
  Sex: Female

DRUGS (10)
  1. ABACAVIR SULFATE [Concomitant]
  2. FOLIC ACID [Concomitant]
  3. BACTRIM [Concomitant]
  4. LAMIVUDINE [Concomitant]
  5. TENOFOVIR DISOPROXIL FUMARATE [Concomitant]
  6. EFAVIRENZ [Suspect]
     Dosage: 250 MG/HS PO, 200 MG/DAILY PO
     Route: 048
     Dates: start: 20101124
  7. EFAVIRENZ [Suspect]
     Dosage: 250 MG/HS PO, 200 MG/DAILY PO
     Route: 048
     Dates: start: 20100714
  8. DIDANOSINE [Concomitant]
  9. VITAMINS (UNSPECIFIED) [Concomitant]
  10. ISENTRESS [Suspect]
     Indication: HIV INFECTION
     Dosage: 100 MG/BID PO
     Route: 048
     Dates: start: 20100714

REACTIONS (12)
  - DERMATITIS ALLERGIC [None]
  - LOBAR PNEUMONIA [None]
  - RASH MACULO-PAPULAR [None]
  - GAMMA-GLUTAMYLTRANSFERASE INCREASED [None]
  - ASPARTATE AMINOTRANSFERASE INCREASED [None]
  - PRURITUS [None]
  - ALANINE AMINOTRANSFERASE INCREASED [None]
  - LYMPHADENOPATHY [None]
  - WEIGHT DECREASED [None]
  - COUGH [None]
  - TACHYPNOEA [None]
  - FATIGUE [None]
